FAERS Safety Report 15545410 (Version 1)
Quarter: 2018Q4

REPORT INFORMATION
  Report Type: Report from Study
  Country: US (occurrence: US)
  Receive Date: 20181024
  Receipt Date: 20181024
  Transmission Date: 20190205
  Serious: Yes (Hospitalization)
  Sender: FDA-Public Use
  Company Number: US-MYLANLABS-2018M1078330

PATIENT
  Age: 67 Year
  Sex: Male

DRUGS (11)
  1. CYTARABINE. [Suspect]
     Active Substance: CYTARABINE
     Indication: PRODUCT USED FOR UNKNOWN INDICATION
     Dosage: 500 MG/M2, (OVER 3 HOURS TWICE A DAY X 4 DOSES ON DAYS 2 AND 3)
     Route: 042
     Dates: start: 201805
  2. METHOTREXATE SODIUM. [Suspect]
     Active Substance: METHOTREXATE SODIUM
     Dosage: 200 MG/M2, UNK (CONTINOUS INFUSION OVER 22 HOURS ON DAY1)
  3. CYCLOPHOSPHAMIDE. [Suspect]
     Active Substance: CYCLOPHOSPHAMIDE
     Indication: PRODUCT USED FOR UNKNOWN INDICATION
     Dosage: 150 MG/M2, BID (OVER 3 HOURS TWICE A DAY ON DAYS 1-3)
     Route: 042
     Dates: start: 201805
  4. PEGFILGRASTIM [Suspect]
     Active Substance: PEGFILGRASTIM
     Indication: PRODUCT USED FOR UNKNOWN INDICATION
     Dosage: 6 MG, UNK (OR FILGRASTIN 5-10 MCG/KG DAILY) ON DAY 4 UNTIL RECOVERY OF GRANULOCYTE COUNT
     Route: 058
     Dates: start: 201805
  5. MESNA. [Suspect]
     Active Substance: MESNA
     Indication: PRODUCT USED FOR UNKNOWN INDICATION
     Dosage: 300 MG/M2, QD (OVER 24 HOURS FOR 3 DAYS ON DAYS 1-3)
     Route: 042
     Dates: start: 201805
  6. INOTUZUMAB OZOGAMICIN [Suspect]
     Active Substance: INOTUZUMAB OZOGAMICIN
     Indication: ACUTE LYMPHOCYTIC LEUKAEMIA
     Dosage: OVER 1 HOUR ON DAY 3
     Route: 042
     Dates: start: 201805
  7. INOTUZUMAB OZOGAMICIN [Suspect]
     Active Substance: INOTUZUMAB OZOGAMICIN
     Dosage: 0.2 MG/M2, UNK (ON DAY2 OR 3, CYCLES 2 AND 4 ONLY)
     Route: 042
     Dates: start: 20180516
  8. RITUXIMAB. [Suspect]
     Active Substance: RITUXIMAB
     Indication: PRODUCT USED FOR UNKNOWN INDICATION
     Dosage: 375 MG/M2, UNK (ON DAY 2 AND 8) (CYCLE 1 AND 3 ONLY)
     Route: 042
     Dates: start: 201805
  9. DEXAMETHASONE. [Suspect]
     Active Substance: DEXAMETHASONE
     Indication: PRODUCT USED FOR UNKNOWN INDICATION
     Dosage: 20 MG, QD (FOR 4 DAYS ON DAYS 1-4 AND DAYS 11-14)
     Route: 042
     Dates: start: 201805
  10. METHOTREXATE SODIUM. [Suspect]
     Active Substance: METHOTREXATE SODIUM
     Indication: PRODUCT USED FOR UNKNOWN INDICATION
     Dosage: 50 MG/M2, UNK (OVER 2 HRS ON DAY 1)
     Route: 042
     Dates: start: 201805
  11. VINCRISTINE SULFATE. [Suspect]
     Active Substance: VINCRISTINE SULFATE
     Indication: PRODUCT USED FOR UNKNOWN INDICATION
     Dosage: 2 MG, UNK (DAY 1 AND DAY 8)
     Route: 042
     Dates: start: 201805

REACTIONS (1)
  - Colitis [Not Recovered/Not Resolved]

NARRATIVE: CASE EVENT DATE: 20180924
